FAERS Safety Report 14199579 (Version 1)
Quarter: 2017Q4

REPORT INFORMATION
  Report Type: Spontaneous
  Country: US (occurrence: None)
  Receive Date: 20171116
  Receipt Date: 20171116
  Transmission Date: 20180321
  Serious: Yes (Other)
  Sender: FDA-Public Use
  Company Number: None

PATIENT
  Sex: Female

DRUGS (1)
  1. DOFETILIDE 125MCG MAYNE PHARMA [Suspect]
     Active Substance: DOFETILIDE
     Route: 048
     Dates: start: 20170316, end: 20171116

REACTIONS (2)
  - Therapy cessation [None]
  - Surgery [None]
